FAERS Safety Report 10529769 (Version 1)
Quarter: 2014Q4

REPORT INFORMATION
  Report Type: Spontaneous
  Country: ES (occurrence: ES)
  Receive Date: 20141021
  Receipt Date: 20141021
  Transmission Date: 20150528
  Serious: Yes (Other)
  Sender: FDA-Public Use
  Company Number: ES-009507513-1410ESP010033

PATIENT
  Age: 69 Year
  Sex: Female

DRUGS (3)
  1. TRYPTIZOL [Suspect]
     Active Substance: AMITRIPTYLINE HYDROCHLORIDE
     Indication: DISLOCATION OF VERTEBRA
     Dosage: 25 MG, QD
     Route: 048
     Dates: start: 20140911, end: 20140926
  2. OTIX [Concomitant]
     Indication: OTITIS EXTERNA
     Dosage: FOUR DROPS THREE TIMES A DAY
     Route: 001
     Dates: start: 20140911
  3. ESPIDIFEN [Suspect]
     Active Substance: IBUPROFEN
     Indication: OTITIS EXTERNA
     Dosage: 600 MG, TID
     Route: 048
     Dates: start: 20140911

REACTIONS (5)
  - Dizziness [Unknown]
  - Dysgeusia [Unknown]
  - Depressed level of consciousness [Unknown]
  - Gait disturbance [Unknown]
  - Nausea [Unknown]

NARRATIVE: CASE EVENT DATE: 201409
